FAERS Safety Report 15697751 (Version 1)
Quarter: 2018Q4

REPORT INFORMATION
  Report Type: Spontaneous
  Country: DE (occurrence: DE)
  Receive Date: 20181207
  Receipt Date: 20181207
  Transmission Date: 20190205
  Serious: Yes (Other)
  Sender: FDA-Public Use
  Company Number: DE-TEVA-2018-DE-983091

PATIENT
  Age: 35 Year
  Sex: Male

DRUGS (10)
  1. TEGRETAL [Interacting]
     Active Substance: CARBAMAZEPINE
     Dosage: 400 MILLIGRAM DAILY;
     Dates: start: 19991031
  2. TEGRETAL [Interacting]
     Active Substance: CARBAMAZEPINE
     Dosage: 300 MILLIGRAM DAILY;
     Dates: start: 19991030
  3. TEGRETAL [Interacting]
     Active Substance: CARBAMAZEPINE
     Dosage: 600 MILLIGRAM DAILY;
     Dates: start: 19991101
  4. METHADONE [Interacting]
     Active Substance: METHADONE HYDROCHLORIDE
     Dosage: 5 ML DAILY;
     Dates: start: 19991030
  5. DIAZEPAM. [Interacting]
     Active Substance: DIAZEPAM
     Dosage: 45 MILLIGRAM DAILY;
     Dates: start: 19991031
  6. ZYPREXA [Interacting]
     Active Substance: OLANZAPINE
     Dosage: 5 MILLIGRAM DAILY;
     Dates: start: 19991031
  7. METHADONE [Interacting]
     Active Substance: METHADONE HYDROCHLORIDE
     Dosage: 4.5 ML DAILY;
     Dates: start: 19991031
  8. DIAZEPAM. [Interacting]
     Active Substance: DIAZEPAM
     Dosage: 20 MILLIGRAM DAILY;
     Dates: start: 19991101
  9. METHADONE [Interacting]
     Active Substance: METHADONE HYDROCHLORIDE
     Dosage: 4 ML DAILY;
     Dates: start: 19991029
  10. DIAZEPAM. [Suspect]
     Active Substance: DIAZEPAM
     Dosage: 35 MILLIGRAM DAILY;
     Dates: start: 19991030

REACTIONS (5)
  - Altered state of consciousness [Recovered/Resolved]
  - Somnolence [Recovered/Resolved]
  - Drug interaction [Unknown]
  - Psychomotor retardation [Recovered/Resolved]
  - Dysarthria [Recovered/Resolved]

NARRATIVE: CASE EVENT DATE: 19991031
